FAERS Safety Report 6932182-1 (Version None)
Quarter: 2010Q3

REPORT INFORMATION
  Report Type: 
  Country: None (occurrence: None)
  Receive Date: 20100819
  Receipt Date: 20100812
  Transmission Date: 20110219
  Serious: Yes (Hospitalization)
  Sender: FDA-Public Use
  Company Number: B0670516A

PATIENT
  Sex: Female

DRUGS (5)
  1. NABUMETONE [Suspect]
     Indication: TENDONITIS
     Dosage: 500MG TWICE PER DAY
     Route: 048
     Dates: start: 20100712, end: 20100712
  2. ACETAMINOPHEN [Suspect]
     Indication: TENDONITIS
     Dosage: 400MG SIX TIMES PER DAY
     Route: 048
     Dates: start: 20100712, end: 20100712
  3. DEXTROPROPOXYPHENE [Suspect]
     Indication: TENDONITIS
     Dosage: 30MG SIX TIMES PER DAY
     Route: 048
     Dates: start: 20100712, end: 20100712
  4. ESOMEPRAZOLE MAGNESIUM [Concomitant]
     Dosage: 40MG PER DAY
     Route: 048
     Dates: start: 20000101
  5. PRAVASTATIN SODIUM [Concomitant]
     Route: 048
     Dates: start: 20100101

REACTIONS (1)
  - AGRANULOCYTOSIS [None]
